FAERS Safety Report 8097668-8 (Version None)
Quarter: 2012Q1

REPORT INFORMATION
  Report Type: 
  Country: None (occurrence: None)
  Receive Date: 20120128
  Receipt Date: 20110706
  Transmission Date: 20120608
  Serious: No
  Sender: FDA-Public Use
  Company Number: US-ABBOTT-11P-163-0836536-00

PATIENT
  Age: 54 Year
  Sex: Female

DRUGS (12)
  1. COCONUT OIL [Concomitant]
     Indication: HAIR DISORDER
  2. PROVIGIL [Concomitant]
     Indication: POOR QUALITY SLEEP
  3. HUMIRA [Suspect]
     Indication: PSORIATIC ARTHROPATHY
     Dosage: EVERY WEEK
     Dates: start: 20110601
  4. COCONUT OIL [Concomitant]
     Indication: SKIN DISORDER
  5. LOVAZA [Concomitant]
     Indication: PRODUCT USED FOR UNKNOWN INDICATION
  6. NASONEX [Concomitant]
     Indication: SEASONAL ALLERGY
  7. VITAMIN D [Concomitant]
     Indication: PRODUCT USED FOR UNKNOWN INDICATION
     Dosage: DAILY
  8. VITAMIN B COMPLEX CAP [Concomitant]
     Indication: PRODUCT USED FOR UNKNOWN INDICATION
  9. BARIATRIC MULTIVITAMIN [Concomitant]
     Indication: GASTRIC BYPASS
     Dosage: 2 A DAY
  10. PERCOCET WITHOUT TYLENOL [Concomitant]
     Indication: PAIN
     Dosage: AS NEEDED
  11. ASCORBIC ACID [Concomitant]
     Indication: PRODUCT USED FOR UNKNOWN INDICATION
  12. VITAMIN A [Concomitant]
     Indication: EYE DISORDER

REACTIONS (2)
  - NAUSEA [None]
  - FATIGUE [None]
